FAERS Safety Report 6270484-5 (Version None)
Quarter: 2009Q3

REPORT INFORMATION
  Report Type: 
  Country: None (occurrence: None)
  Receive Date: 20090716
  Receipt Date: 20090709
  Transmission Date: 20100115
  Serious: Yes (Hospitalization)
  Sender: FDA-Public Use
  Company Number: US-ASTRAZENECA-2009UW13423

PATIENT
  Age: 30 Year
  Sex: Female
  Weight: 104.3 kg

DRUGS (4)
  1. SEROQUEL [Suspect]
     Indication: BIPOLAR DISORDER
     Route: 048
     Dates: start: 20030101, end: 20060101
  2. RISPERDAL [Concomitant]
     Dates: start: 20050101, end: 20050101
  3. ZYPREXA [Concomitant]
     Dates: start: 20030101, end: 20030101
  4. ABILIFY [Concomitant]
     Dates: start: 20030101

REACTIONS (4)
  - LOSS OF CONSCIOUSNESS [None]
  - OBESITY [None]
  - SARCOIDOSIS [None]
  - TYPE 2 DIABETES MELLITUS [None]
